FAERS Safety Report 6961230-8 (Version None)
Quarter: 2010Q3

REPORT INFORMATION
  Report Type: 
  Country: None (occurrence: None)
  Receive Date: 20100901
  Receipt Date: 20100628
  Transmission Date: 20110219
  Serious: Yes (Death, Hospitalization, Other)
  Sender: FDA-Public Use
  Company Number: PHHY2010JP24601

PATIENT
  Sex: Male
  Weight: 53 kg

DRUGS (8)
  1. ICL670A ICL+DISTAB [Suspect]
     Indication: IRON OVERLOAD
     Dosage: 500 MG DAILY
     Route: 048
     Dates: start: 20090120, end: 20090309
  2. ICL670A ICL+DISTAB [Suspect]
     Dosage: 500 MG DAILY
     Route: 048
     Dates: start: 20090325
  3. OPALMON [Concomitant]
     Dosage: 3 DF
     Route: 048
     Dates: start: 20090120, end: 20090309
  4. HYPEN [Concomitant]
     Dosage: 2 DF
     Route: 048
     Dates: start: 20090120, end: 20090309
  5. TETRAMIDE [Concomitant]
     Dosage: 1 DF
     Route: 048
     Dates: start: 20090120, end: 20090309
  6. ASPIRIN [Concomitant]
     Dosage: 1 DF
     Route: 048
     Dates: start: 20090216, end: 20090609
  7. LENDORMIN [Concomitant]
     Dosage: 1 DF
     Route: 048
     Dates: start: 20090120, end: 20090309
  8. AMOBAN [Concomitant]
     Dosage: 1 DF
     Route: 048
     Dates: start: 20090216, end: 20090609

REACTIONS (6)
  - BLOOD LACTATE DEHYDROGENASE INCREASED [None]
  - LYMPHOCYTE COUNT DECREASED [None]
  - MONOCYTE COUNT INCREASED [None]
  - SERUM FERRITIN INCREASED [None]
  - SMALL INTESTINAL HAEMORRHAGE [None]
  - SUBARACHNOID HAEMORRHAGE [None]
